FAERS Safety Report 25670909 (Version 1)
Quarter: 2025Q3

REPORT INFORMATION
  Report Type: Spontaneous
  Country: GB (occurrence: GB)
  Receive Date: 20250812
  Receipt Date: 20250812
  Transmission Date: 20251020
  Serious: Yes (Disabling, Other)
  Sender: AUROBINDO
  Company Number: GB-MHRA-MED-202507302049002240-FRTVY

PATIENT
  Age: 60 Year
  Sex: Female
  Weight: 180 kg

DRUGS (3)
  1. NITROFURANTOIN [Suspect]
     Active Substance: NITROFURANTOIN
     Indication: Adverse drug reaction
     Route: 065
     Dates: start: 20151110
  2. METHENAMINE [Concomitant]
     Active Substance: METHENAMINE
     Indication: Adverse drug reaction
     Route: 065
     Dates: start: 20151110
  3. CITALOPRAM [Concomitant]
     Active Substance: CITALOPRAM
     Indication: Persistent depressive disorder
     Route: 065

REACTIONS (2)
  - Dyspnoea [Not Recovered/Not Resolved]
  - Medication error [Unknown]

NARRATIVE: CASE EVENT DATE: 20250115
